APPROVED DRUG PRODUCT: TROSPIUM CHLORIDE
Active Ingredient: TROSPIUM CHLORIDE
Strength: 20MG
Dosage Form/Route: TABLET;ORAL
Application: A091575 | Product #001 | TE Code: AB
Applicant: GLENMARK PHARMACEUTICALS LTD
Approved: Aug 13, 2010 | RLD: No | RS: Yes | Type: RX